FAERS Safety Report 5734497-1 (Version None)
Quarter: 2008Q2

REPORT INFORMATION
  Report Type: 
  Country: None (occurrence: None)
  Receive Date: 20080512
  Receipt Date: 20080409
  Transmission Date: 20081010
  Serious: Yes (Other)
  Sender: FDA-Public Use
  Company Number: US-ASTRAZENECA-2008UW09081

PATIENT
  Sex: Male

DRUGS (4)
  1. SEROQUEL [Suspect]
     Route: 048
  2. SEROQUEL [Suspect]
     Dosage: LOWER DOSE
     Route: 048
  3. ABILIFY [Suspect]
  4. ABILIFY [Suspect]
     Dosage: LOWER DOSE

REACTIONS (1)
  - ANURIA [None]
